FAERS Safety Report 9001637 (Version 1)
Quarter: 2013Q1

REPORT INFORMATION
  Report Type: Spontaneous
  Country: US (occurrence: US)
  Receive Date: 20130107
  Receipt Date: 20130107
  Transmission Date: 20140127
  Serious: No
  Sender: FDA-Public Use
  Company Number: US-PFIZER INC-2013002929

PATIENT
  Sex: Male

DRUGS (2)
  1. ALPRAZOLAM [Suspect]
     Indication: ANXIETY
     Dosage: 2 MG, 4X/DAY
  2. ALPRAZOLAM [Suspect]
     Indication: PANIC DISORDER

REACTIONS (1)
  - Anxiety [Unknown]
